FAERS Safety Report 7440672-0 (Version None)
Quarter: 2011Q2

REPORT INFORMATION
  Report Type: 
  Country: None (occurrence: None)
  Receive Date: 20110427
  Receipt Date: 20110421
  Transmission Date: 20111010
  Serious: Yes (Other)
  Sender: FDA-Public Use
  Company Number: CN-GENZYME-CAMP-1001593

PATIENT

DRUGS (9)
  1. CAMPATH [Suspect]
     Dosage: 15 MG, ONCE ON DAY +1
     Route: 042
  2. METHYLPREDNISOLONE [Concomitant]
     Indication: PREMEDICATION
     Dosage: 40 MG, UNK
     Route: 042
  3. DIPHENHYDRAMINE [Concomitant]
     Indication: PREMEDICATION
  4. MYCOPHENOLATE MOFETIL [Concomitant]
     Indication: IMMUNOSUPPRESSANT DRUG THERAPY
     Dosage: 0.5 - 1 G BID
  5. FK 506 [Concomitant]
     Indication: IMMUNOSUPPRESSANT DRUG THERAPY
     Dosage: 0.1 MG/KG, UNK ON DAY +2
  6. PREDNISONE [Concomitant]
     Indication: IMMUNOSUPPRESSANT DRUG THERAPY
  7. ACETAMINOPHEN [Concomitant]
     Indication: PREMEDICATION
  8. METHYLPREDNISOLONE [Concomitant]
     Dosage: 500 MG, UNK
     Route: 042
  9. CAMPATH [Suspect]
     Indication: RENAL TRANSPLANT
     Dosage: 15 MG, ONCE
     Route: 042

REACTIONS (2)
  - GLOMERULONEPHROPATHY [None]
  - KIDNEY TRANSPLANT REJECTION [None]
